FAERS Safety Report 8381975-5 (Version None)
Quarter: 2012Q2

REPORT INFORMATION
  Report Type: 
  Country: None (occurrence: None)
  Receive Date: 20120522
  Receipt Date: 20120522
  Transmission Date: 20120825
  Serious: Yes (Hospitalization)
  Sender: FDA-Public Use
  Company Number: None

PATIENT
  Age: 69 Year
  Sex: Male
  Weight: 98 kg

DRUGS (4)
  1. ARANESP [Concomitant]
  2. RAPAMUNE [Suspect]
     Indication: IMMUNOSUPPRESSION
     Dosage: 3 TABLETS DAILY PO
     Route: 048
     Dates: start: 20090525, end: 20120511
  3. CELLCEPT [Concomitant]
  4. LISINOPRIL [Concomitant]

REACTIONS (1)
  - PNEUMONIA [None]
